FAERS Safety Report 23076457 (Version 1)
Quarter: 2023Q4

REPORT INFORMATION
  Report Type: Spontaneous
  Country: CN (occurrence: CN)
  Receive Date: 20231017
  Receipt Date: 20231017
  Transmission Date: 20240110
  Serious: Yes (Hospitalization, Other)
  Sender: FDA-Public Use
  Company Number: CN-009507513-2310CHN007237

PATIENT
  Age: 69 Year
  Sex: Male
  Weight: 55.5 kg

DRUGS (1)
  1. CILASTATIN SODIUM\IMIPENEM [Suspect]
     Active Substance: CILASTATIN SODIUM\IMIPENEM
     Indication: Anti-infective therapy
     Dosage: 500 MG, BID
     Route: 033
     Dates: start: 20230904, end: 20230912

REACTIONS (4)
  - Haemorrhage subcutaneous [Recovering/Resolving]
  - Erythema [Recovering/Resolving]
  - Henoch-Schonlein purpura [Unknown]
  - Incorrect route of product administration [Unknown]

NARRATIVE: CASE EVENT DATE: 20230904
